FAERS Safety Report 24971509 (Version 7)
Quarter: 2025Q3

REPORT INFORMATION
  Report Type: Spontaneous
  Country: US (occurrence: US)
  Receive Date: 20250214
  Receipt Date: 20250918
  Transmission Date: 20251020
  Serious: Yes (Death, Disabling, Other)
  Sender: PFIZER
  Company Number: US-PFIZER INC-202500031533

PATIENT
  Age: 18 Year
  Sex: Male
  Weight: 72.562 kg

DRUGS (2)
  1. HYDROMORPHONE HYDROCHLORIDE [Suspect]
     Active Substance: HYDROMORPHONE HYDROCHLORIDE
     Indication: Hernia repair
     Route: 042
     Dates: start: 20151117, end: 20151117
  2. HYDROMORPHONE HYDROCHLORIDE [Suspect]
     Active Substance: HYDROMORPHONE HYDROCHLORIDE
     Indication: Pain

REACTIONS (1)
  - Drug dependence [Fatal]

NARRATIVE: CASE EVENT DATE: 20151117
